FAERS Safety Report 19550372 (Version 2)
Quarter: 2024Q3

REPORT INFORMATION
  Report Type: Report from Study
  Country: JP (occurrence: JP)
  Receive Date: 20210715
  Receipt Date: 20240912
  Transmission Date: 20241017
  Serious: Yes (Hospitalization)
  Sender: ALEXION PHARMACEUTICALS
  Company Number: JP-ALXN-A202107730AA

PATIENT
  Age: 44 Year
  Sex: Female
  Weight: 38.1 kg

DRUGS (7)
  1. SOLIRIS [Suspect]
     Active Substance: ECULIZUMAB
     Indication: Neuromyelitis optica spectrum disorder
     Dosage: 900 MILLIGRAM, QW
     Route: 042
     Dates: start: 20200122, end: 20200212
  2. SOLIRIS [Suspect]
     Active Substance: ECULIZUMAB
     Dosage: 1200 MG, Q2W
     Route: 042
     Dates: start: 20200219, end: 20210630
  3. SOLIRIS [Suspect]
     Active Substance: ECULIZUMAB
     Dosage: 1200 MG, Q2W
     Route: 042
  4. PREDNISOLONE [Concomitant]
     Active Substance: PREDNISOLONE
     Indication: Neuromyelitis optica spectrum disorder
     Dosage: 20 MILLIGRAM, QD
     Route: 048
     Dates: start: 20171120
  5. IMURAN [Concomitant]
     Active Substance: AZATHIOPRINE
     Indication: Neuromyelitis optica spectrum disorder
     Dosage: 100 MILLIGRAM, QD
     Route: 048
     Dates: start: 20171120, end: 20200623
  6. IMURAN [Concomitant]
     Active Substance: AZATHIOPRINE
     Dosage: 50 MILLIGRAM, QD
     Route: 048
     Dates: start: 20200708, end: 20200721
  7. CYCLOPHOSPHAMIDE [Concomitant]
     Active Substance: CYCLOPHOSPHAMIDE
     Indication: Neuromyelitis optica spectrum disorder
     Dosage: 50 MILLIGRAM, QD
     Route: 048
     Dates: start: 20200624, end: 20200707

REACTIONS (1)
  - Eye pain [Recovering/Resolving]

NARRATIVE: CASE EVENT DATE: 20210101
